FAERS Safety Report 4844749-5 (Version None)
Quarter: 2005Q4

REPORT INFORMATION
  Report Type: 
  Country: None (occurrence: None)
  Receive Date: 20051129
  Receipt Date: 20051107
  Transmission Date: 20060501
  Serious: Yes (Death, Hospitalization)
  Sender: FDA-Public Use
  Company Number: 2005BH002845

PATIENT
  Age: 77 Year
  Sex: Male

DRUGS (1)
  1. EXTRANEAL [Suspect]
     Indication: PERITONEAL DIALYSIS
     Dosage: AS NEEDED, IP
     Route: 033
     Dates: start: 20021015, end: 20050405

REACTIONS (3)
  - KLEBSIELLA INFECTION [None]
  - PERITONITIS BACTERIAL [None]
  - SHOCK [None]
